FAERS Safety Report 10680550 (Version 1)
Quarter: 2014Q4

REPORT INFORMATION
  Report Type: Spontaneous
  Country: US (occurrence: US)
  Receive Date: 20141229
  Receipt Date: 20141229
  Transmission Date: 20150529
  Serious: No
  Sender: FDA-Public Use
  Company Number: US-SA-2014SA032681

PATIENT
  Sex: Female
  Weight: 49.8 kg

DRUGS (1)
  1. PLAVIX [Suspect]
     Active Substance: CLOPIDOGREL BISULFATE
     Indication: FACTOR V LEIDEN MUTATION
     Route: 048

REACTIONS (2)
  - Contusion [Unknown]
  - Off label use [Unknown]
